FAERS Safety Report 19153716 (Version 3)
Quarter: 2022Q1

REPORT INFORMATION
  Report Type: Spontaneous
  Country: US (occurrence: US)
  Receive Date: 20210419
  Receipt Date: 20220207
  Transmission Date: 20220423
  Serious: Yes (Other)
  Sender: FDA-Public Use
  Company Number: US-PFIZER INC-2021314162

PATIENT
  Age: 55 Year
  Sex: Male
  Weight: 90.703 kg

DRUGS (6)
  1. INLYTA [Suspect]
     Active Substance: AXITINIB
     Indication: Renal cancer
     Dosage: 5 MG, 2X/DAY
     Route: 048
     Dates: start: 20210308
  2. INLYTA [Suspect]
     Active Substance: AXITINIB
     Dosage: 1 MG, 2X/DAY
  3. FISH OIL [Concomitant]
     Active Substance: FISH OIL
     Dosage: UNK
  4. ATORVASTATIN CALCIUM [Concomitant]
     Active Substance: ATORVASTATIN CALCIUM
     Dosage: UNK
  5. VITAMIN C [Concomitant]
     Active Substance: ASCORBIC ACID
     Dosage: UNK
  6. HERBALS\TURMERIC [Concomitant]
     Active Substance: HERBALS\TURMERIC
     Dosage: UNK

REACTIONS (7)
  - Renal disorder [Unknown]
  - Flatulence [Not Recovered/Not Resolved]
  - Cardiac disorder [Unknown]
  - Temperature intolerance [Unknown]
  - Lung disorder [Unknown]
  - Pulmonary mass [Unknown]
  - Glossodynia [Unknown]

NARRATIVE: CASE EVENT DATE: 20210101
